FAERS Safety Report 10375755 (Version 6)
Quarter: 2015Q1

REPORT INFORMATION
  Report Type: Report from Study
  Country: US (occurrence: US)
  Receive Date: 20140811
  Receipt Date: 20150108
  Transmission Date: 20150720
  Serious: Yes (Hospitalization, Other)
  Sender: FDA-Public Use
  Company Number: US-ACTELION-A-US2014-103148

PATIENT
  Age: 33 Year
  Sex: Female

DRUGS (7)
  1. REMODULIN [Concomitant]
     Active Substance: TREPROSTINIL
     Dosage: 31 NG, UNK
     Route: 058
  2. OXYGEN. [Concomitant]
     Active Substance: OXYGEN
     Dosage: 2 L/MIN, UNK
     Dates: start: 20100406
  3. ADCIRCA [Concomitant]
     Active Substance: TADALAFIL
     Dosage: 40 MG, UNK
     Dates: start: 20140412
  4. TYVASO [Concomitant]
     Active Substance: TREPROSTINIL
     Dosage: UNK
     Dates: start: 20130808
  5. MACITENTAN [Suspect]
     Active Substance: MACITENTAN
     Indication: PULMONARY ARTERIAL HYPERTENSION
     Dosage: 10 MG, QD
     Route: 048
     Dates: start: 20140718
  6. MACITENTAN [Suspect]
     Active Substance: MACITENTAN
     Dosage: 10 MG, QD
     Route: 048
  7. COUMADIN [Concomitant]
     Active Substance: WARFARIN SODIUM
     Dosage: UNK
     Dates: start: 20140408

REACTIONS (6)
  - Nausea [Unknown]
  - Cholecystitis [Unknown]
  - Cholecystectomy [Recovered/Resolved]
  - Vomiting [Unknown]
  - Catheter site pain [Unknown]
  - Headache [Unknown]

NARRATIVE: CASE EVENT DATE: 20140728
